FAERS Safety Report 16235380 (Version 1)
Quarter: 2019Q2

REPORT INFORMATION
  Report Type: Spontaneous
  Country: DE (occurrence: DE)
  Receive Date: 20190424
  Receipt Date: 20190424
  Transmission Date: 20190711
  Serious: Yes (Other)
  Sender: FDA-Public Use
  Company Number: DE-ANIPHARMA-2019-DE-000052

PATIENT
  Sex: Male

DRUGS (2)
  1. SILDENAFIL. [Suspect]
     Active Substance: SILDENAFIL
     Dosage: 25 MG UNK
     Route: 048
  2. CANDESARTAN. [Suspect]
     Active Substance: CANDESARTAN
     Indication: BLOOD PRESSURE ABNORMAL
     Dosage: UNK / 4 MG DAILY
     Route: 048

REACTIONS (6)
  - Headache [Unknown]
  - Myalgia [Unknown]
  - Blood pressure decreased [Unknown]
  - Myocardial infarction [Unknown]
  - Erectile dysfunction [Unknown]
  - Dizziness [Unknown]
